FAERS Safety Report 4884899-0 (Version None)
Quarter: 2006Q1

REPORT INFORMATION
  Report Type: 
  Country: None (occurrence: None)
  Receive Date: 20060119
  Receipt Date: 20051130
  Transmission Date: 20060701
  Serious: Yes (Hospitalization, Other)
  Sender: FDA-Public Use
  Company Number: JP-BRISTOL-MYERS SQUIBB COMPANY-13204599

PATIENT
  Age: 55 Year
  Sex: Female

DRUGS (1)
  1. KENACORT-A OPHTHALMIC OINTMENT [Suspect]
     Indication: MACULOPATHY
     Route: 031
     Dates: start: 20050118, end: 20050118

REACTIONS (1)
  - ENDOPHTHALMITIS [None]
